FAERS Safety Report 10783164 (Version 4)
Quarter: 2015Q2

REPORT INFORMATION
  Report Type: Report from Study
  Country: JP (occurrence: JP)
  Receive Date: 20150210
  Receipt Date: 20150624
  Transmission Date: 20150821
  Serious: Yes (Other)
  Sender: FDA-Public Use
  Company Number: JP-CELGENE-JPN-2015021406

PATIENT
  Age: 58 Year
  Sex: Male
  Weight: 67 kg

DRUGS (9)
  1. REBAMIPIDE [Concomitant]
     Active Substance: REBAMIPIDE
     Indication: CHRONIC GASTRITIS
     Route: 048
     Dates: start: 20140416
  2. ABRAXANE [Suspect]
     Active Substance: PACLITAXEL
     Dosage: 300 MILLIGRAM
     Route: 041
     Dates: start: 20140903
  3. BIOFERMIN [Concomitant]
     Active Substance: BACILLUS SUBTILIS\LACTOBACILLUS ACIDOPHILUS\STREPTOCOCCUS FAECAIS
     Indication: FUNCTIONAL GASTROINTESTINAL DISORDER
     Route: 048
     Dates: start: 20140416
  4. ABRAXANE [Suspect]
     Active Substance: PACLITAXEL
     Indication: METASTATIC GASTRIC CANCER
     Route: 041
     Dates: start: 20140806
  5. ABRAXANE [Suspect]
     Active Substance: PACLITAXEL
     Route: 041
     Dates: start: 20141224
  6. ABRAXANE [Suspect]
     Active Substance: PACLITAXEL
     Route: 041
     Dates: start: 20150114, end: 20150114
  7. ABRAXANE [Suspect]
     Active Substance: PACLITAXEL
     Dosage: 3 TABLET
     Route: 041
     Dates: start: 20141001
  8. ABRAXANE [Suspect]
     Active Substance: PACLITAXEL
     Route: 041
     Dates: start: 20141029
  9. ABRAXANE [Suspect]
     Active Substance: PACLITAXEL
     Route: 041
     Dates: start: 20141126

REACTIONS (1)
  - Metastatic gastric cancer [Recovered/Resolved]

NARRATIVE: CASE EVENT DATE: 20150128
